FAERS Safety Report 13552876 (Version 1)
Quarter: 2017Q2

REPORT INFORMATION
  Report Type: Spontaneous
  Country: CN (occurrence: CN)
  Receive Date: 20170517
  Receipt Date: 20170517
  Transmission Date: 20170830
  Serious: Yes (Death, Life-Threatening, Hospitalization, Other)
  Sender: FDA-Public Use
  Company Number: CN-SUN PHARMACEUTICAL INDUSTRIES LTD-2017R1-140660

PATIENT
  Age: 48 Year
  Sex: Male

DRUGS (2)
  1. CISPLATIN. [Suspect]
     Active Substance: CISPLATIN
     Indication: GASTRIC CANCER
     Dosage: 2 CYCLES
     Route: 065
  2. DOCETAXEL. [Suspect]
     Active Substance: DOCETAXEL
     Indication: GASTRIC CANCER
     Dosage: 2 CYCLES
     Route: 065

REACTIONS (7)
  - Coagulopathy [Fatal]
  - Multiple organ dysfunction syndrome [Fatal]
  - Anaemia [Recovered/Resolved]
  - Hepatic failure [Fatal]
  - Acute kidney injury [Fatal]
  - Aorto-oesophageal fistula [Fatal]
  - Disseminated intravascular coagulation [Fatal]
